FAERS Safety Report 10552646 (Version 2)
Quarter: 2014Q4

REPORT INFORMATION
  Report Type: Other
  Country: US (occurrence: US)
  Receive Date: 20141029
  Receipt Date: 20141029
  Transmission Date: 20150529
  Serious: Yes (Hospitalization)
  Sender: FDA-Public Use
  Company Number: US-CREALTA PHARMACEUTICALS-2011S1000033

PATIENT
  Age: 51 Year
  Sex: Male
  Weight: 110 kg

DRUGS (13)
  1. ANTIHISTAMINES [Concomitant]
     Active Substance: ANTIHISTAMINES NOS
     Dates: start: 20110404, end: 20110404
  2. BUMEX [Suspect]
     Active Substance: BUMETANIDE
     Indication: BLOOD PRESSURE ABNORMAL
     Dates: start: 2009, end: 20110418
  3. CORTICOSTEROIDS [Concomitant]
     Active Substance: CORTICOSTEROID NOS
     Indication: PRODUCT USED FOR UNKNOWN INDICATION
     Dates: start: 20110307, end: 20110404
  4. KRYSTEXXA [Suspect]
     Active Substance: PEGLOTICASE
     Indication: GOUTY TOPHUS
     Dosage: DRUG ROUTE: INTRAVENOUS
     Route: 042
     Dates: start: 20110307, end: 20110307
  5. KRYSTEXXA [Suspect]
     Active Substance: PEGLOTICASE
     Indication: GOUT
     Dosage: DRUG ROUTE: INTRAVENOUS
     Route: 042
     Dates: start: 20110321, end: 20110321
  6. COLCHICINE. [Suspect]
     Active Substance: COLCHICINE
     Indication: GOUT
     Dates: start: 2009, end: 20110418
  7. COZAAR [Suspect]
     Active Substance: LOSARTAN POTASSIUM
     Indication: BLOOD PRESSURE ABNORMAL
     Dates: start: 2009, end: 20110418
  8. ANAKINRA [Concomitant]
     Active Substance: ANAKINRA
     Indication: GOUT
  9. ANTIHISTAMINES [Concomitant]
     Active Substance: ANTIHISTAMINES NOS
     Dates: start: 20110321, end: 20110321
  10. KRYSTEXXA [Suspect]
     Active Substance: PEGLOTICASE
     Dosage: DRUG ROUTE: INTRAVENOUS
     Route: 042
     Dates: start: 20110404, end: 20110404
  11. PREDNISONE. [Concomitant]
     Active Substance: PREDNISONE
     Indication: PRODUCT USED FOR UNKNOWN INDICATION
  12. ANTIHISTAMINES [Concomitant]
     Active Substance: ANTIHISTAMINES NOS
     Indication: PROPHYLAXIS
     Dates: start: 20110307, end: 20110307
  13. BUMEX [Suspect]
     Active Substance: BUMETANIDE
     Indication: CHRONIC KIDNEY DISEASE

REACTIONS (3)
  - Hepatic failure [Recovering/Resolving]
  - Hepatotoxicity [Recovering/Resolving]
  - Acute kidney injury [Recovering/Resolving]

NARRATIVE: CASE EVENT DATE: 20110418
